FAERS Safety Report 24429009 (Version 2)
Quarter: 2024Q4

REPORT INFORMATION
  Report Type: Spontaneous
  Country: US (occurrence: US)
  Receive Date: 20241011
  Receipt Date: 20241023
  Transmission Date: 20250115
  Serious: Yes (Death, Life-Threatening, Hospitalization, Other)
  Sender: BRISTOL-MYERS SQUIBB COMPANY
  Company Number: US-BRISTOL-MYERS SQUIBB COMPANY-2024-158254

PATIENT
  Age: 77 Year
  Sex: Female

DRUGS (16)
  1. THALOMID [Suspect]
     Active Substance: THALIDOMIDE
     Indication: Gastrointestinal vascular malformation haemorrhagic
     Dates: start: 20220125
  2. THALOMID [Suspect]
     Active Substance: THALIDOMIDE
     Indication: Anaemia
     Dosage: TWICE OR THRICE IN A WEEK
     Dates: start: 2023
  3. ELIQUIS [Concomitant]
     Active Substance: APIXABAN
  4. LACTULOSE [Concomitant]
     Active Substance: LACTULOSE
     Indication: Hepatic encephalopathy
  5. XIFAXAN [Concomitant]
     Active Substance: RIFAXIMIN
     Indication: Hepatic encephalopathy
  6. URSO [Concomitant]
     Active Substance: URSODIOL
     Indication: Primary biliary cholangitis
     Dosage: HAS BEEN ON THIS DRUG FOR 15 YEARS
  7. CREON [Concomitant]
     Active Substance: PANCRELIPASE AMYLASE\PANCRELIPASE LIPASE\PANCRELIPASE PROTEASE
     Indication: Pancreatic failure
  8. PRILOSEC OTC [Concomitant]
     Active Substance: OMEPRAZOLE MAGNESIUM
     Indication: Gastrooesophageal reflux disease
  9. PRILOSEC OTC [Concomitant]
     Active Substance: OMEPRAZOLE MAGNESIUM
     Indication: Gastritis
  10. PRILOSEC OTC [Concomitant]
     Active Substance: OMEPRAZOLE MAGNESIUM
     Indication: Duodenal vascular ectasia
  11. SILDENAFIL CITRATE [Concomitant]
     Active Substance: SILDENAFIL CITRATE
     Indication: Pulmonary hypertension
     Dosage: DOSE WAS REDUCED AS HER PULMONARY HYPERTENSION WAS IMPROVED
  12. EVOXAC [Concomitant]
     Active Substance: CEVIMELINE HYDROCHLORIDE
     Indication: Sjogren^s syndrome
  13. REMERON [Concomitant]
     Active Substance: MIRTAZAPINE
     Indication: Depression
     Dosage: AT BED TIME
  14. REMERON [Concomitant]
     Active Substance: MIRTAZAPINE
     Indication: Weight decreased
  15. LANTUS [Concomitant]
     Active Substance: INSULIN GLARGINE
     Indication: Diabetes mellitus
     Dosage: INITIAL DOSE WAS 10 UNITS BUT THIS WAS DECREASED INTERMITTENTLY
  16. HUMALOG [Concomitant]
     Active Substance: INSULIN LISPRO
     Indication: Diabetes mellitus
     Dosage: INJECTION BASED ON SLIDING SCALE. HER USUAL DOSE WAS LESS THAN 5 UNITS SOMETIMES NONE

REACTIONS (8)
  - Septic shock [Unknown]
  - Respiratory failure [Fatal]
  - Aspiration [Fatal]
  - Anorectal varices haemorrhage [Fatal]
  - Mental impairment [Fatal]
  - Liver disorder [Unknown]
  - Subdural haematoma [Unknown]
  - Fall [Unknown]

NARRATIVE: CASE EVENT DATE: 20230101
